FAERS Safety Report 24842182 (Version 5)
Quarter: 2025Q4

REPORT INFORMATION
  Report Type: Spontaneous
  Country: US (occurrence: US)
  Receive Date: 20250115
  Receipt Date: 20251215
  Transmission Date: 20260118
  Serious: Yes (Other)
  Sender: SANOFI AVENTIS
  Company Number: US-SA-2025SA011049

PATIENT
  Age: 66 Year
  Sex: Male
  Weight: 71.21 kg

DRUGS (31)
  1. DUPIXENT [Suspect]
     Active Substance: DUPILUMAB
     Indication: Asthma
     Dosage: 300 MG, QOW
     Route: 058
     Dates: start: 2023
  2. DUPIXENT [Suspect]
     Active Substance: DUPILUMAB
     Indication: Dermatitis atopic
  3. FLUTICASONE PROPIONATE [Concomitant]
     Active Substance: FLUTICASONE PROPIONATE
  4. TRIAMCINOLONE ACETONIDE [Concomitant]
     Active Substance: TRIAMCINOLONE ACETONIDE
  5. VENTOLIN HFA [Concomitant]
     Active Substance: ALBUTEROL SULFATE
  6. NIFEDIPINE [Concomitant]
     Active Substance: NIFEDIPINE
  7. NAPROXEN [Concomitant]
     Active Substance: NAPROXEN
  8. NADOLOL [Concomitant]
     Active Substance: NADOLOL
  9. LORATADINE [Concomitant]
     Active Substance: LORATADINE
  10. HYOSCYAMINE SULFATE [Concomitant]
     Active Substance: HYOSCYAMINE SULFATE
  11. DOXYCYCLINE HYCLATE [Concomitant]
     Active Substance: DOXYCYCLINE HYCLATE
  12. DICYCLOMINE HYDROCHLORIDE [Concomitant]
     Active Substance: DICYCLOMINE HYDROCHLORIDE
  13. CLOBETASOL PROPIONATE [Concomitant]
     Active Substance: CLOBETASOL PROPIONATE
  14. CHOLESTYRAMINE [Concomitant]
     Active Substance: CHOLESTYRAMINE
  15. CALCIPOTRIENE [Concomitant]
     Active Substance: CALCIPOTRIENE
  16. BANOPHEN [Concomitant]
     Active Substance: DIPHENHYDRAMINE HYDROCHLORIDE
  17. ARMODAFINIL [Concomitant]
     Active Substance: ARMODAFINIL
  18. ALFUZOSIN HYDROCHLORIDE [Concomitant]
     Active Substance: ALFUZOSIN HYDROCHLORIDE
  19. AJOVY [Concomitant]
     Active Substance: FREMANEZUMAB-VFRM
  20. ACETAMINOPHEN [Concomitant]
     Active Substance: ACETAMINOPHEN
  21. OPZELURA [Concomitant]
     Active Substance: RUXOLITINIB PHOSPHATE
  22. ROSUVASTATIN CALCIUM [Concomitant]
     Active Substance: ROSUVASTATIN CALCIUM
  23. ITRACONAZOLE [Concomitant]
     Active Substance: ITRACONAZOLE
  24. DULOXETINE HYDROCHLORIDE [Concomitant]
     Active Substance: DULOXETINE HYDROCHLORIDE
  25. IBUPROFEN [Concomitant]
     Active Substance: IBUPROFEN
  26. CHLORTHALIDONE [Concomitant]
     Active Substance: CHLORTHALIDONE
  27. TIZANIDINE HYDROCHLORIDE [Concomitant]
     Active Substance: TIZANIDINE HYDROCHLORIDE
  28. OMEPRAZOLE [Concomitant]
     Active Substance: OMEPRAZOLE
  29. METRONIDAZOLE [Concomitant]
     Active Substance: METRONIDAZOLE
  30. METHOCARBAMOL [Concomitant]
     Active Substance: METHOCARBAMOL
  31. ETODOLAC [Concomitant]
     Active Substance: ETODOLAC

REACTIONS (5)
  - Prostate cancer [Unknown]
  - Rebound atopic dermatitis [Unknown]
  - Migraine [Unknown]
  - Injection site haemorrhage [Unknown]
  - Asthma [Unknown]
